FAERS Safety Report 7463481-5 (Version None)
Quarter: 2011Q2

REPORT INFORMATION
  Report Type: 
  Country: None (occurrence: None)
  Receive Date: 20110506
  Receipt Date: 20110426
  Transmission Date: 20111010
  Serious: Yes (Other)
  Sender: FDA-Public Use
  Company Number: PHHY2011US30256

PATIENT
  Sex: Male
  Weight: 100 kg

DRUGS (11)
  1. FLONASE [Concomitant]
  2. TERAZOSIN HCL [Concomitant]
  3. ATIVAN [Concomitant]
  4. LEVETIRACETAM [Concomitant]
     Dosage: UNK
  5. AMLODIPINE BESYLATE [Concomitant]
  6. TASIGNA [Suspect]
     Dosage: 200 MG, BID
     Route: 048
     Dates: start: 20110329, end: 20110411
  7. OMEPRAZOLE [Concomitant]
  8. SIMVASTATIN [Concomitant]
  9. TASIGNA [Suspect]
     Indication: CHRONIC MYELOID LEUKAEMIA
     Dosage: 150 MG, BID
     Route: 048
     Dates: start: 20110315, end: 20110328
  10. ENALAPRIL [Concomitant]
  11. ASPIRIN [Concomitant]

REACTIONS (3)
  - DIZZINESS [None]
  - HANGOVER [None]
  - HEADACHE [None]
